FAERS Safety Report 24933467 (Version 1)
Quarter: 2025Q1

REPORT INFORMATION
  Report Type: Spontaneous
  Country: ES (occurrence: ES)
  Receive Date: 20250206
  Receipt Date: 20250206
  Transmission Date: 20250409
  Serious: Yes (Death, Other)
  Sender: UNICHEM
  Company Number: ES-UNICHEM LABORATORIES LIMITED-UNI-2025-ES-000188

PATIENT

DRUGS (3)
  1. BACLOFEN [Suspect]
     Active Substance: BACLOFEN
     Indication: Muscle spasms
     Route: 048
  2. LEVETIRACETAM [Suspect]
     Active Substance: LEVETIRACETAM
     Indication: Muscle spasms
     Route: 048
  3. CLONAZEPAM [Suspect]
     Active Substance: CLONAZEPAM
     Indication: Muscle spasms
     Route: 048

REACTIONS (3)
  - Frontotemporal dementia [Fatal]
  - Amyotrophic lateral sclerosis [Fatal]
  - Drug ineffective [Unknown]
